FAERS Safety Report 4336643-3 (Version None)
Quarter: 2004Q2

REPORT INFORMATION
  Report Type: 
  Country: None (occurrence: None)
  Receive Date: 20040412
  Receipt Date: 20040401
  Transmission Date: 20050107
  Serious: Yes (Hospitalization)
  Sender: FDA-Public Use
  Company Number: FR-MERCK-0404FRA00004

PATIENT
  Age: 88 Year
  Sex: Female
  Weight: 74 kg

DRUGS (1)
  1. VIOXX [Suspect]
     Indication: OSTEOARTHRITIS
     Route: 048
     Dates: start: 20030101, end: 20040109

REACTIONS (10)
  - ANOREXIA [None]
  - DYSPNOEA [None]
  - DYSURIA [None]
  - ENTEROBACTER INFECTION [None]
  - GASTROINTESTINAL DISORDER [None]
  - HEART SOUNDS ABNORMAL [None]
  - LUNG CREPITATION [None]
  - NAUSEA [None]
  - OEDEMA PERIPHERAL [None]
  - RENAL FAILURE [None]
